FAERS Safety Report 7963821-4 (Version None)
Quarter: 2011Q4

REPORT INFORMATION
  Report Type: 
  Country: None (occurrence: None)
  Receive Date: 20111208
  Receipt Date: 20111128
  Transmission Date: 20120403
  Serious: Yes (Hospitalization)
  Sender: FDA-Public Use
  Company Number: US-BAYER-201041615NA

PATIENT
  Age: 39 Year
  Sex: Female
  Weight: 108.84 kg

DRUGS (5)
  1. DROSPIRENONE AND ETHINYL ESTRADIOL [Suspect]
     Indication: ORAL CONTRACEPTION
     Dosage: UNK UNK, UNK
     Route: 048
     Dates: start: 20090501, end: 20091101
  2. TRIAZOLAM [Concomitant]
     Dosage: 0.25 MG, UNK
     Route: 048
  3. FLEXERIL [Concomitant]
     Dosage: 10 MG, UNK
     Route: 048
  4. BACTRIM BALSAMICO [Concomitant]
     Dosage: UNK
     Dates: start: 20090910
  5. XANAX [Concomitant]
     Dosage: UNK
     Dates: start: 20090910

REACTIONS (4)
  - OEDEMA PERIPHERAL [None]
  - DEEP VEIN THROMBOSIS [None]
  - PAIN [None]
  - DYSSTASIA [None]
